FAERS Safety Report 13288214 (Version 2)
Quarter: 2017Q1

REPORT INFORMATION
  Report Type: Report from Study
  Country: US (occurrence: US)
  Receive Date: 20170302
  Receipt Date: 20170321
  Transmission Date: 20170428
  Serious: Yes (Hospitalization)
  Sender: FDA-Public Use
  Company Number: US-EXELIXIS-CABO-17008400

PATIENT
  Sex: Male

DRUGS (17)
  1. WARFARIN [Concomitant]
     Active Substance: WARFARIN
  2. ALLOPURINOL. [Concomitant]
     Active Substance: ALLOPURINOL
  3. FENOFIBRATE. [Concomitant]
     Active Substance: FENOFIBRATE
  4. AMOXICILLIN + CLAV. POTASSIUM [Concomitant]
  5. LEVOTHYROXINE. [Concomitant]
     Active Substance: LEVOTHYROXINE
  6. AMOXICILLIN. [Concomitant]
     Active Substance: AMOXICILLIN
  7. MUPIROCIN. [Concomitant]
     Active Substance: MUPIROCIN
  8. TRIAMCINOLONE [Concomitant]
     Active Substance: TRIAMCINOLONE
  9. CARVEDILOL. [Concomitant]
     Active Substance: CARVEDILOL
  10. ESCITALOPRAM [Concomitant]
     Active Substance: ESCITALOPRAM OXALATE
  11. CYANOCOBALAMIN. [Concomitant]
     Active Substance: CYANOCOBALAMIN
  12. FUROSEMIDE. [Concomitant]
     Active Substance: FUROSEMIDE
  13. SUTENT [Concomitant]
     Active Substance: SUNITINIB MALATE
  14. CHLORHEXIDINE [Concomitant]
     Active Substance: CHLORHEXIDINE
  15. CABOMETYX [Suspect]
     Active Substance: CABOZANTINIB S-MALATE
     Indication: RENAL CANCER
     Dosage: 60 MG, QD
     Route: 048
     Dates: start: 20170129, end: 201703
  16. TESTOSTERONE CYPIONATE. [Concomitant]
     Active Substance: TESTOSTERONE CYPIONATE
  17. VITAMIN D [Concomitant]
     Active Substance: CHOLECALCIFEROL

REACTIONS (2)
  - Adverse drug reaction [Unknown]
  - Infection [Unknown]
